FAERS Safety Report 19260580 (Version 2)
Quarter: 2021Q2

REPORT INFORMATION
  Report Type: Spontaneous
  Country: US (occurrence: US)
  Receive Date: 20210514
  Receipt Date: 20210615
  Transmission Date: 20210717
  Serious: Yes (Other)
  Sender: FDA-Public Use
  Company Number: US-ASTRAZENECA-2021A420883

PATIENT
  Age: 1009 Month
  Sex: Female
  Weight: 47.6 kg

DRUGS (1)
  1. SYMBICORT [Suspect]
     Active Substance: BUDESONIDE\FORMOTEROL FUMARATE DIHYDRATE
     Indication: CHRONIC OBSTRUCTIVE PULMONARY DISEASE
     Dosage: 160/4.5 MCGS TWO PUFFS TWICE DAILY
     Route: 055
     Dates: start: 202104

REACTIONS (2)
  - Device failure [Unknown]
  - Colon cancer [Recovered/Resolved]

NARRATIVE: CASE EVENT DATE: 202006
